FAERS Safety Report 14100518 (Version 1)
Quarter: 2017Q4

REPORT INFORMATION
  Report Type: Spontaneous
  Country: US (occurrence: US)
  Receive Date: 20171017
  Receipt Date: 20171017
  Transmission Date: 20180321
  Serious: Yes (Other)
  Sender: FDA-Public Use
  Company Number: US-ASTRAZENECA-2017SF05317

PATIENT
  Age: 9243 Day
  Sex: Female
  Weight: 99.8 kg

DRUGS (6)
  1. LITHIUM. [Concomitant]
     Active Substance: LITHIUM
     Indication: AFFECTIVE DISORDER
     Route: 048
     Dates: start: 20091105
  2. SEROQUEL XR [Suspect]
     Active Substance: QUETIAPINE FUMARATE
     Indication: BIPOLAR DISORDER
     Route: 048
     Dates: start: 2015, end: 201512
  3. LITHIUM. [Concomitant]
     Active Substance: LITHIUM
     Indication: BIPOLAR DISORDER
     Route: 048
     Dates: start: 20091105
  4. SEROQUEL XR [Suspect]
     Active Substance: QUETIAPINE FUMARATE
     Indication: BIPOLAR DISORDER
     Route: 048
     Dates: start: 2016
  5. SEROQUEL XR [Suspect]
     Active Substance: QUETIAPINE FUMARATE
     Indication: BIPOLAR DISORDER
     Route: 048
     Dates: start: 20091105
  6. SEROQUEL XR [Suspect]
     Active Substance: QUETIAPINE FUMARATE
     Indication: BIPOLAR DISORDER
     Dosage: GENERIC SEROQUEL XR 300MG DAILY
     Route: 048
     Dates: start: 2015

REACTIONS (12)
  - Blood pressure increased [Recovered/Resolved]
  - Mania [Recovered/Resolved]
  - Mood swings [Recovered/Resolved]
  - Obsessive thoughts [Recovered/Resolved]
  - Paranoia [Recovered/Resolved]
  - Weight decreased [Unknown]
  - Weight increased [Unknown]
  - Product substitution issue [Unknown]
  - Depression [Recovered/Resolved]
  - Blood cholesterol increased [Unknown]
  - Suicidal ideation [Recovered/Resolved]
  - Abdominal pain upper [Recovered/Resolved]

NARRATIVE: CASE EVENT DATE: 20091105
